FAERS Safety Report 8433186-2 (Version None)
Quarter: 2012Q2

REPORT INFORMATION
  Report Type: 
  Country: None (occurrence: None)
  Receive Date: 20120607
  Receipt Date: 20120523
  Transmission Date: 20120825
  Serious: Yes (Hospitalization)
  Sender: FDA-Public Use
  Company Number: CRC-12-223

PATIENT
  Age: 17 Year
  Sex: Female

DRUGS (1)
  1. FLURBIPROFEN [Suspect]
     Indication: HEADACHE
     Dosage: ONE TABLET; ONCE; ORAL
     Route: 048

REACTIONS (2)
  - LOSS OF CONSCIOUSNESS [None]
  - BODY TEMPERATURE DECREASED [None]
